FAERS Safety Report 4645886-0 (Version None)
Quarter: 2005Q2

REPORT INFORMATION
  Report Type: 
  Country: None (occurrence: None)
  Receive Date: 20050425
  Receipt Date: 20050407
  Transmission Date: 20051028
  Serious: Yes (Hospitalization)
  Sender: FDA-Public Use
  Company Number: 8010094

PATIENT
  Sex: Male
  Weight: 0.93 kg

DRUGS (5)
  1. LEVETIRACETAM [Suspect]
     Indication: MYOCLONIC EPILEPSY
     Dosage: 1500 MG /D TRP
     Route: 064
  2. OXCARBAZEPINE [Concomitant]
  3. CLOBAZAM [Concomitant]
  4. FOLIC ACID [Concomitant]
  5. FLUOXETINE [Concomitant]

REACTIONS (5)
  - DRUG EXPOSURE DURING PREGNANCY [None]
  - FOETAL GROWTH RETARDATION [None]
  - FOETAL HEART RATE ABNORMAL [None]
  - PLACENTAL INSUFFICIENCY [None]
  - PREMATURE BABY [None]
